FAERS Safety Report 7546856-5 (Version None)
Quarter: 2011Q2

REPORT INFORMATION
  Report Type: 
  Country: None (occurrence: None)
  Receive Date: 20110614
  Receipt Date: 20110606
  Transmission Date: 20111010
  Serious: Yes (Other)
  Sender: FDA-Public Use
  Company Number: US-PFIZER INC-2011123012

PATIENT
  Sex: Male

DRUGS (1)
  1. XALATAN [Suspect]
     Dosage: UNK
     Dates: end: 20110601

REACTIONS (5)
  - KERATOPATHY [None]
  - CORNEAL OEDEMA [None]
  - CORNEAL DISORDER [None]
  - VISION BLURRED [None]
  - CORNEAL DECOMPENSATION [None]
